FAERS Safety Report 6538061-6 (Version None)
Quarter: 2010Q1

REPORT INFORMATION
  Report Type: 
  Country: None (occurrence: None)
  Receive Date: 20100112
  Receipt Date: 20100112
  Transmission Date: 20100710
  Serious: Yes (Disabling, Other)
  Sender: FDA-Public Use
  Company Number: None

PATIENT
  Age: 2 Year
  Sex: Female
  Weight: 10.4327 kg

DRUGS (2)
  1. SINGULAIR [Suspect]
     Indication: ASTHMA
     Dosage: 4 MG 1X DAILY PO
     Route: 048
     Dates: start: 20091121, end: 20100104
  2. SINGULAIR [Suspect]
     Indication: COUGH
     Dosage: 4 MG 1X DAILY PO
     Route: 048
     Dates: start: 20091121, end: 20100104

REACTIONS (8)
  - CHILLS [None]
  - CLOSTRIDIUM DIFFICILE COLITIS [None]
  - DECREASED APPETITE [None]
  - DIARRHOEA [None]
  - FATIGUE [None]
  - FUNGAL INFECTION [None]
  - HEADACHE [None]
  - RECTAL PROLAPSE [None]
